FAERS Safety Report 8731866 (Version 2)
Quarter: 2012Q4

REPORT INFORMATION
  Report Type: Report from Study
  Country: FR (occurrence: FR)
  Receive Date: 20120820
  Receipt Date: 20120831
  Transmission Date: 20130627
  Serious: Yes (Death)
  Sender: FDA-Public Use
  Company Number: FR-CELGENEUS-056-C5013-12080386

PATIENT
  Age: 64 None
  Sex: Male
  Weight: 72 kg

DRUGS (20)
  1. CC-5013 [Suspect]
     Indication: MDS
     Dosage: 5 Milligram
     Route: 048
     Dates: start: 20050713, end: 20051107
  2. CLONAZEPAM [Concomitant]
     Indication: POLYNEUROPATHY IN DIABETES
     Route: 065
     Dates: start: 2001
  3. DEFEROXAMINE [Concomitant]
     Indication: IRON OVERLOAD
     Route: 065
     Dates: start: 2001
  4. INSULIN [Concomitant]
     Indication: DIABETES
     Route: 065
  5. LENOGRASTIM [Concomitant]
     Indication: NEUTROPENIA
     Route: 065
     Dates: start: 20050816
  6. SPIRONOLACTONE [Concomitant]
     Indication: DIABETES MELLITUS POOR CONTROL
     Route: 065
     Dates: start: 20051208
  7. PARAFFIN LIQUID [Concomitant]
     Indication: CONSTIPATION
     Route: 065
     Dates: start: 20050912
  8. LISINOPRIL [Concomitant]
     Indication: HYPERTENSION
  9. MIXTARD [Concomitant]
     Indication: DRUG USE FOR UNKNOWN INDICATION
     Dosage: 68 IU (International Unit)
     Route: 065
  10. MIXTARD [Concomitant]
     Dosage: 34 IU (International Unit)
     Route: 065
  11. MIXTARD [Concomitant]
     Dosage: 36/18
     Route: 065
  12. ALDACTONE [Concomitant]
     Indication: DRUG USE FOR UNKNOWN INDICATION
     Dosage: 75
     Route: 065
  13. ALDACTONE [Concomitant]
     Dosage: 50
     Route: 065
  14. ZESTRIL [Concomitant]
     Indication: DRUG USE FOR UNKNOWN INDICATION
     Dosage: 40
     Route: 065
  15. ZESTRIL [Concomitant]
     Dosage: 20
     Route: 065
  16. LASILIX [Concomitant]
     Indication: DRUG USE FOR UNKNOWN INDICATION
     Dosage: 40
     Route: 065
  17. BLOOD AND RELATED PRODUCTS [Concomitant]
     Indication: MDS
     Route: 041
  18. DAFALGAN [Concomitant]
     Indication: DRUG USE FOR UNKNOWN INDICATION
     Route: 048
  19. DESFERAL [Concomitant]
     Indication: DRUG USE FOR UNKNOWN INDICATION
     Dosage: 4 Gram
     Route: 058
  20. TRANSIPEG [Concomitant]
     Indication: DRUG USE FOR UNKNOWN INDICATION
     Route: 065

REACTIONS (1)
  - Hepatocellular carcinoma [Fatal]
